FAERS Safety Report 25401255 (Version 1)
Quarter: 2025Q2

REPORT INFORMATION
  Report Type: Spontaneous
  Country: US (occurrence: US)
  Receive Date: 20250605
  Receipt Date: 20250605
  Transmission Date: 20250717
  Serious: No
  Sender: TARO
  Company Number: US-TARO PHARMACEUTICALS USA INC.-2025TAR00705

PATIENT

DRUGS (1)
  1. AMMONIUM LACTATE [Suspect]
     Active Substance: AMMONIUM LACTATE
     Indication: Angiopathy
     Dosage: DUMPING IT ON HER LEGS, MORE THAN A PUMP (LAST YEAR^S BOTTLE); ONE PUMPFULL TO EACH LEG (THIS YEAR^S
     Route: 061

REACTIONS (2)
  - Product use issue [Unknown]
  - Product container issue [Unknown]

NARRATIVE: CASE EVENT DATE: 20240101
